FAERS Safety Report 10646375 (Version 2)
Quarter: 2015Q1

REPORT INFORMATION
  Report Type: Report from Study
  Country: US (occurrence: US)
  Receive Date: 20141211
  Receipt Date: 20150105
  Transmission Date: 20150720
  Serious: Yes (Death)
  Sender: FDA-Public Use
  Company Number: US-009507513-1412USA005192

PATIENT

DRUGS (11)
  1. VINBLASTINE SULFATE. [Suspect]
     Active Substance: VINBLASTINE SULFATE
     Indication: MALIGNANT MELANOMA
     Dosage: 1.2 MG/M2, PUSH IMMEDIATELY AFTER CISPLATIN ON DAYS 1 THROUGH 4
     Route: 042
  2. DACARBAZINE. [Suspect]
     Active Substance: DACARBAZINE
     Indication: MALIGNANT MELANOMA
     Dosage: 800 MG/M2, ADMINISTERED IV OVER 1 HOUR ON DAY 1 ONLY AFTER VINBLASTINE
     Route: 042
  3. RECOMBINANT HUMAN INTERLEUKIN-2 (125ALA) [Suspect]
     Active Substance: ALDESLEUKIN
     Indication: MALIGNANT MELANOMA
     Dosage: 9 MU/M2 ADMINISTERED AS A 96-HOUR CONTINUOUS IV INFUSION ON DAYS 1 THROUGH 4
     Route: 042
  4. RANITIDINE [Concomitant]
     Active Substance: RANITIDINE\RANITIDINE HYDROCHLORIDE
  5. INTRON A [Suspect]
     Active Substance: INTERFERON ALFA-2B
     Indication: MALIGNANT MELANOMA
     Dosage: 5 MU/M2 ADMINISTERED ON DAYS 1 THROUGH 5
     Route: 042
  6. DEXTROSE. [Concomitant]
     Active Substance: DEXTROSE
  7. GRANULOCYTE COLONY STIMULATING FACTOR (UNSPECIFIED) [Concomitant]
     Active Substance: FILGRASTIM
  8. ACETAMINOPHEN. [Concomitant]
     Active Substance: ACETAMINOPHEN
  9. NAPROXEN. [Concomitant]
     Active Substance: NAPROXEN
  10. MAGNESIUM SULFATE. [Concomitant]
     Active Substance: MAGNESIUM SULFATE
  11. CISPLATIN. [Suspect]
     Active Substance: CISPLATIN
     Indication: MALIGNANT MELANOMA
     Dosage: 20 MG/M2, ADMINISTERED AS A 30-MINUTE INFUSION ON DAYS 1 THROUGH 4

REACTIONS (1)
  - Death [Fatal]
